FAERS Safety Report 7773288-7 (Version None)
Quarter: 2011Q3

REPORT INFORMATION
  Report Type: 
  Country: None (occurrence: None)
  Receive Date: 20110922
  Receipt Date: 20110912
  Transmission Date: 20111222
  Serious: Yes (Death)
  Sender: FDA-Public Use
  Company Number: US-MYLANLABS-2009S1019432

PATIENT
  Age: 54 Year
  Sex: Female
  Weight: 60 kg

DRUGS (15)
  1. FENTANYL-100 [Suspect]
     Dosage: CHANGES PATCHES Q2D
     Route: 062
     Dates: end: 20090412
  2. DICYCLOMINE [Concomitant]
     Indication: MUSCLE SPASMS
     Dosage: AND NAUSEA
  3. DIPHENHYDRAMINE HCL [Concomitant]
     Indication: NAUSEA
     Route: 042
  4. KLONOPIN [Concomitant]
  5. MIRALAX /00754501/ [Concomitant]
  6. CYMBALTA [Concomitant]
  7. LEXAPRO [Concomitant]
  8. PHENTERMINE [Suspect]
  9. HYDROCODONE [Concomitant]
     Dosage: 10MG/500MG
  10. LUNESTA [Concomitant]
  11. OXYCODONE [Concomitant]
     Dosage: 15MG IR TABLETS
  12. FENTANYL-100 [Suspect]
     Indication: PAIN
     Dosage: CHANGES PATCHES Q2D
     Route: 062
     Dates: end: 20090412
  13. ADVIL LIQUI-GELS [Concomitant]
     Indication: PAIN
  14. COMPAZINE [Concomitant]
     Indication: NAUSEA
     Route: 042
  15. REGLAN [Concomitant]

REACTIONS (2)
  - CARDIO-RESPIRATORY ARREST [None]
  - TOXICITY TO VARIOUS AGENTS [None]
